FAERS Safety Report 8088723 (Version 3)
Quarter: 2013Q1

REPORT INFORMATION
  Report Type: Report from Study
  Country: US (occurrence: US)
  Receive Date: 20110812
  Receipt Date: 20130214
  Transmission Date: 20140127
  Serious: Yes (Hospitalization)
  Sender: FDA-Public Use
  Company Number: US-UCBSA-012813

PATIENT
  Age: 52 Year
  Sex: Female
  Weight: 75.74 kg

DRUGS (6)
  1. LACOSAMIDE [Suspect]
     Indication: EPILEPSY
     Dosage: KIT NO: 31135
     Route: 048
     Dates: start: 20100421, end: 20100526
  2. TOPAMAX [Suspect]
  3. DILANTIN XL [Concomitant]
     Dosage: PAST 40 YEARS
  4. DILANTIN XL [Concomitant]
     Route: 048
  5. PHENYTOIN [Concomitant]
     Indication: EPILEPSY
     Dates: start: 1980, end: 20100501
  6. PHENYTOIN [Concomitant]
     Indication: EPILEPSY
     Dates: start: 20100530

REACTIONS (2)
  - Status epilepticus [Recovered/Resolved]
  - Toxic encephalopathy [Recovered/Resolved]
